FAERS Safety Report 23919152 (Version 2)
Quarter: 2024Q2

REPORT INFORMATION
  Report Type: Spontaneous
  Country: AU (occurrence: AU)
  Receive Date: 20240530
  Receipt Date: 20240603
  Transmission Date: 20240715
  Serious: Yes (Other)
  Sender: FDA-Public Use
  Company Number: None

PATIENT
  Sex: Male

DRUGS (9)
  1. PREDNISOLONE [Suspect]
     Active Substance: PREDNISOLONE
     Indication: Product used for unknown indication
     Dosage: UNK (THE PATIENT^S MOTHER RECEIVED 30MG DAILY)
     Route: 064
  2. PREDNISOLONE [Suspect]
     Active Substance: PREDNISOLONE
     Dosage: UNK (THE PATIENT^S MOTHER^S DOSE WAS TAPERED)
     Route: 064
  3. TOFACITINIB [Suspect]
     Active Substance: TOFACITINIB
     Indication: Product used for unknown indication
     Dosage: UNK (THE PATIENT^S MOTHER RECEIVED 10 MILLIGRAM, BID)
     Route: 064
  4. TOFACITINIB [Suspect]
     Active Substance: TOFACITINIB
     Dosage: UNK (THE PATIENT^S MOTHER RECEIVED 5 MILLIGRAM, BID)
     Route: 064
  5. TOFACITINIB [Suspect]
     Active Substance: TOFACITINIB
     Dosage: UNK (THE PATIENT^S MOTHER RECEIVED 10 MILLIGRAM, BID)
     Route: 064
  6. FOLIC ACID [Suspect]
     Active Substance: FOLIC ACID
     Indication: Product used for unknown indication
     Dosage: UNK (THE PATIENT^S MOTHER RECEIVED 5MG DAILY)
     Route: 064
  7. VITAMINS [Suspect]
     Active Substance: VITAMINS
     Indication: Product used for unknown indication
     Dosage: UNK
     Route: 064
  8. VEDOLIZUMAB [Suspect]
     Active Substance: VEDOLIZUMAB
     Indication: Product used for unknown indication
     Dosage: UNK (THE PATIENT^S MOTHER RECEIVED 300 MILLIGRAM (AT WEEKS 0, 2 AND 6)
     Route: 064
  9. VEDOLIZUMAB [Suspect]
     Active Substance: VEDOLIZUMAB
     Dosage: UNK (THE PATIENT^S MOTHER RECEIVED 108 MILLIGRAM (EVERY OTHER WEEK)
     Route: 064

REACTIONS (2)
  - Low birth weight baby [Unknown]
  - Foetal exposure during pregnancy [Unknown]
